FAERS Safety Report 4982256-X (Version None)
Quarter: 2006Q2

REPORT INFORMATION
  Report Type: 
  Country: None (occurrence: None)
  Receive Date: 20060424
  Receipt Date: 20060424
  Transmission Date: 20061013
  Serious: Yes (Other)
  Sender: FDA-Public Use
  Company Number: None

PATIENT
  Age: 20 Year
  Sex: Female
  Weight: 61.2356 kg

DRUGS (2)
  1. GEODON [Suspect]
     Indication: HYPOMANIA
     Dosage: 20 MG TWICE DAILY PO
     Route: 048
     Dates: start: 20060127, end: 20060203
  2. GEODON [Suspect]
     Indication: MANIA
     Dosage: 20 MG TWICE DAILY PO
     Route: 048
     Dates: start: 20060127, end: 20060203

REACTIONS (5)
  - ANXIETY [None]
  - CHILLS [None]
  - DRUG WITHDRAWAL SYNDROME [None]
  - PALPITATIONS [None]
  - TREMOR [None]
